FAERS Safety Report 24885026 (Version 1)
Quarter: 2025Q1

REPORT INFORMATION
  Report Type: Report from Study
  Country: CA (occurrence: CA)
  Receive Date: 20250124
  Receipt Date: 20250124
  Transmission Date: 20250409
  Serious: Yes (Hospitalization, Other)
  Sender: HLS THERAPEUTICS
  Company Number: CA-HLS-202500071

PATIENT
  Age: 39 Year
  Sex: Female

DRUGS (1)
  1. CLOZARIL [Suspect]
     Active Substance: CLOZAPINE
     Indication: Product used for unknown indication
     Route: 048
     Dates: start: 20101108

REACTIONS (4)
  - Neutropenia [Unknown]
  - Neutrophil count decreased [Unknown]
  - Pneumonia aspiration [Unknown]
  - Pneumonia [Unknown]

NARRATIVE: CASE EVENT DATE: 20250103
